FAERS Safety Report 16160302 (Version 1)
Quarter: 2019Q2

REPORT INFORMATION
  Report Type: Spontaneous
  Country: CH (occurrence: CH)
  Receive Date: 20190404
  Receipt Date: 20190404
  Transmission Date: 20190711
  Serious: Yes (Hospitalization)
  Sender: FDA-Public Use
  Company Number: CH-009507513-1903CHE012659

PATIENT
  Sex: Female

DRUGS (36)
  1. CEFUROXIME. [Suspect]
     Active Substance: CEFUROXIME
     Dates: start: 20181221, end: 20181222
  2. INDOMETHACIN. [Concomitant]
     Active Substance: INDOMETHACIN
     Dates: start: 201812, end: 201901
  3. TORSEMIDE. [Concomitant]
     Active Substance: TORSEMIDE
     Dosage: UNK
     Dates: start: 201901, end: 201902
  4. NEPHROTRANS [Concomitant]
     Active Substance: SODIUM BICARBONATE
     Dosage: UNK
     Dates: start: 201902
  5. CLOPIDOGREL [Concomitant]
     Active Substance: CLOPIDOGREL BISULFATE
     Dosage: UNK
     Dates: start: 20190306
  6. TRAMAL [Concomitant]
     Active Substance: TRAMADOL
     Dosage: UNK, PRN (AS NECESSARY)
     Dates: start: 201902
  7. INEGY [Suspect]
     Active Substance: EZETIMIBE\SIMVASTATIN
     Dosage: 1 DOSAGE FORM, QD.
     Dates: start: 2011, end: 201812
  8. OLMESARTAN MEDOXOMIL (+) AMLODIPINE BESYLATE [Suspect]
     Active Substance: AMLODIPINE BESYLATE\OLMESARTAN MEDOXOMIL
     Dosage: 1 DOSAGE FORM, QD
     Dates: start: 2017, end: 201812
  9. ATORVASTATIN CALCIUM. [Suspect]
     Active Substance: ATORVASTATIN CALCIUM
     Dosage: 40 MILLIGRAM, QD
     Dates: start: 201812, end: 201902
  10. XYZAL [Concomitant]
     Active Substance: LEVOCETIRIZINE DIHYDROCHLORIDE
     Dosage: UNK, PRN (AS NECESSARY)
     Dates: start: 201812, end: 201901
  11. CONCOR [Concomitant]
     Active Substance: BISOPROLOL FUMARATE
     Dosage: UNK
     Dates: start: 20190219
  12. LISINOPRIL. [Concomitant]
     Active Substance: LISINOPRIL
     Dosage: UNK
     Dates: start: 201902
  13. ASPIRIN CARDIO [Concomitant]
     Active Substance: ASPIRIN
     Dates: start: 2016
  14. NOVORAPID [Concomitant]
     Active Substance: INSULIN ASPART
  15. NEXIUM [Concomitant]
     Active Substance: ESOMEPRAZOLE MAGNESIUM
     Dosage: UNK
     Dates: start: 201901, end: 20190225
  16. ATARAX [Concomitant]
     Active Substance: HYDROXYZINE HYDROCHLORIDE
     Dosage: UNK
     Dates: start: 201902
  17. OLMESARTAN MEDOXOMIL. [Suspect]
     Active Substance: OLMESARTAN MEDOXOMIL
     Dosage: 40 MILLIGRAM, QD
     Dates: start: 2011, end: 2017
  18. HEPARIN [Concomitant]
     Active Substance: HEPARIN SODIUM
     Dates: start: 201812, end: 201902
  19. ACETAMINOPHEN. [Suspect]
     Active Substance: ACETAMINOPHEN
     Dosage: UNK UNK, PRN (AS NECESSARY)
     Dates: start: 201901, end: 201902
  20. LAXOBERON [Concomitant]
     Active Substance: SODIUM PICOSULFATE
     Dosage: UNK, PRN (AS NECESSARY)
     Dates: start: 201812, end: 201901
  21. PLAVIX [Concomitant]
     Active Substance: CLOPIDOGREL BISULFATE
     Dosage: UNK
     Dates: start: 201901, end: 201902
  22. TORSEMIDE. [Concomitant]
     Active Substance: TORSEMIDE
     Dosage: UNK
     Dates: start: 201902
  23. CALCIPARINE [Concomitant]
     Active Substance: HEPARIN CALCIUM
     Dosage: UNK
     Dates: start: 201902
  24. ATACAND [Suspect]
     Active Substance: CANDESARTAN CILEXETIL
     Dosage: 16 MILLIGRAM, QD
     Dates: start: 201901, end: 201902
  25. VALVERDE CONSTIPATION DRAGEES [Concomitant]
     Dates: start: 201812, end: 201901
  26. TIENAM [Concomitant]
     Active Substance: CILASTATIN SODIUM\IMIPENEM
     Dosage: UNK
     Dates: start: 201902
  27. APROVEL [Suspect]
     Active Substance: IRBESARTAN
     Dosage: 150 MILLIGRAM, QD
     Dates: start: 201812, end: 201902
  28. BELOC-ZOK [Concomitant]
     Active Substance: METOPROLOL SUCCINATE
     Dates: start: 201812, end: 20190218
  29. ACETAMINOPHEN. [Suspect]
     Active Substance: ACETAMINOPHEN
     Dosage: 500 MILLIGRAM, PRN (AS NECESSARY).
     Dates: start: 20181201, end: 201901
  30. TRESIBA [Concomitant]
     Active Substance: INSULIN DEGLUDEC
  31. VANCOMYCIN [Concomitant]
     Active Substance: VANCOMYCIN
     Dosage: UNK
     Dates: start: 20181221, end: 20181222
  32. VANCOMYCIN [Concomitant]
     Active Substance: VANCOMYCIN
     Dosage: UNK
     Dates: start: 201902
  33. TOBRADEX [Concomitant]
     Active Substance: DEXAMETHASONE\TOBRAMYCIN
     Dosage: UNK
     Dates: start: 201812, end: 201901
  34. QUANTALAN [Concomitant]
     Active Substance: CHOLESTYRAMINE
     Dosage: UNK
     Dates: start: 201902
  35. IMPORTAL [Concomitant]
     Active Substance: LACTITOL
     Dosage: UNK, PRN (AS NECESSARY)
     Dates: start: 201902
  36. ADALAT [Concomitant]
     Active Substance: NIFEDIPINE
     Dosage: UNK UNK, PRN (AS NECESSARY)
     Dates: start: 201902

REACTIONS (1)
  - Cholestatic liver injury [Recovering/Resolving]

NARRATIVE: CASE EVENT DATE: 20190205
